FAERS Safety Report 7399236-X (Version None)
Quarter: 2011Q2

REPORT INFORMATION
  Report Type: 
  Country: None (occurrence: None)
  Receive Date: 20110407
  Receipt Date: 20110331
  Transmission Date: 20111010
  Serious: Yes (Other)
  Sender: FDA-Public Use
  Company Number: US-PFIZER INC-2005011357

PATIENT
  Sex: Male

DRUGS (9)
  1. ACETYLSALICYLIC ACID SRT [Concomitant]
     Route: 065
  2. DOCUSATE [Concomitant]
     Route: 065
  3. METOPROLOL TARTRATE [Concomitant]
     Route: 065
  4. FAMOTIDINE [Concomitant]
     Route: 065
  5. HYOSCYAMINE [Suspect]
     Indication: ABDOMINAL DISCOMFORT
     Route: 048
     Dates: start: 20041013, end: 20041213
  6. MULTI-VITAMINS [Concomitant]
     Route: 065
  7. ZOLOFT [Suspect]
     Route: 048
     Dates: start: 20040729, end: 20041101
  8. ATORVASTATIN CALCIUM [Concomitant]
     Route: 065
  9. ESOMEPRAZOLE [Concomitant]
     Route: 065

REACTIONS (4)
  - BRUXISM [None]
  - TARDIVE DYSKINESIA [None]
  - DYSTONIA [None]
  - TRISMUS [None]
